FAERS Safety Report 22071833 (Version 1)
Quarter: 2023Q1

REPORT INFORMATION
  Report Type: Spontaneous
  Country: US (occurrence: US)
  Receive Date: 20230307
  Receipt Date: 20230307
  Transmission Date: 20230418
  Serious: No
  Sender: FDA-Public Use
  Company Number: US-INCYTE CORPORATION-2023IN002065

PATIENT

DRUGS (2)
  1. JAKAFI [Suspect]
     Active Substance: RUXOLITINIB
     Indication: Myelofibrosis
     Dosage: 20MG IN THE MORNING, 10MG IN THE EVENING
     Route: 048
     Dates: start: 20221028
  2. JAKAFI [Suspect]
     Active Substance: RUXOLITINIB
     Dosage: 20MG IN THE MORNING, 10MG IN THE EVENING
     Route: 048
     Dates: start: 20221028

REACTIONS (1)
  - Osteoarthritis [Unknown]
